FAERS Safety Report 4992097-5 (Version None)
Quarter: 2006Q2

REPORT INFORMATION
  Report Type: 
  Country: None (occurrence: None)
  Receive Date: 20060504
  Receipt Date: 20050414
  Transmission Date: 20061013
  Serious: Yes (Hospitalization)
  Sender: FDA-Public Use
  Company Number: US-MERCK-0504USA03148

PATIENT
  Age: 69 Year
  Sex: Male
  Weight: 82 kg

DRUGS (5)
  1. VIOXX [Suspect]
     Indication: ARTHRALGIA
     Route: 048
     Dates: start: 20021122, end: 20041014
  2. ALTACE [Concomitant]
     Route: 065
  3. LIPITOR [Concomitant]
     Route: 065
  4. NEXIUM [Concomitant]
     Route: 065
  5. VERAPAMIL [Concomitant]
     Route: 065
     Dates: end: 20040329

REACTIONS (3)
  - CARDIOMEGALY [None]
  - CORONARY ARTERY DISEASE [None]
  - MYOCARDIAL INFARCTION [None]
